FAERS Safety Report 4421580-6 (Version None)
Quarter: 2004Q3

REPORT INFORMATION
  Report Type: 
  Country: None (occurrence: None)
  Receive Date: 20040809
  Receipt Date: 20040809
  Transmission Date: 20050211
  Serious: Yes (Hospitalization)
  Sender: FDA-Public Use
  Company Number: None

PATIENT
  Age: 64 Year
  Sex: Female

DRUGS (2)
  1. SEPTRA [Suspect]
     Indication: DIVERTICULITIS
     Dosage: ONE BID PO
     Route: 048
     Dates: start: 20040105, end: 20040108
  2. FLAGYL [Suspect]
     Dosage: 5 MG BID PO
     Route: 048
     Dates: start: 20040105, end: 20040108

REACTIONS (1)
  - VOMITING [None]
